FAERS Safety Report 7266530-2 (Version None)
Quarter: 2011Q1

REPORT INFORMATION
  Report Type: 
  Country: None (occurrence: None)
  Receive Date: 20110131
  Receipt Date: 20110118
  Transmission Date: 20110831
  Serious: Yes (Hospitalization, Other)
  Sender: FDA-Public Use
  Company Number: DE-ELI_LILLY_AND_COMPANY-DE201011005992

PATIENT
  Age: 76 Year
  Sex: Female

DRUGS (4)
  1. FORTEO [Suspect]
     Indication: OSTEOPOROSIS
     Dosage: 20 UG, UNKNOWN
     Route: 058
     Dates: start: 20100719, end: 20101224
  2. PREDNISOLONE [Concomitant]
     Indication: COUGH
  3. FORTEO [Suspect]
     Dosage: 20 UG, UNKNOWN
     Route: 058
     Dates: end: 20101224
  4. DELIX [Concomitant]
     Indication: HYPERTENSION

REACTIONS (9)
  - DEHYDRATION [None]
  - MALAISE [None]
  - DIZZINESS [None]
  - BLOOD TEST ABNORMAL [None]
  - NAUSEA [None]
  - ASTHENIA [None]
  - LOSS OF CONSCIOUSNESS [None]
  - RENAL FAILURE [None]
  - VOMITING [None]
